FAERS Safety Report 8008888-2 (Version None)
Quarter: 2011Q4

REPORT INFORMATION
  Report Type: 
  Country: None (occurrence: None)
  Receive Date: 20111221
  Receipt Date: 20111208
  Transmission Date: 20120403
  Serious: Yes (Hospitalization)
  Sender: FDA-Public Use
  Company Number: JP-006649

PATIENT
  Sex: Male
  Weight: 50.7 kg

DRUGS (3)
  1. ALLOPURINOL [Concomitant]
  2. DEGARELIX (DEGARELIX) (240 MG, 360 MG) [Suspect]
     Indication: PROSTATE CANCER
     Dosage: (240 MG 1X SUBCUTANEOUS), (360 MG 1X/3 MONTHS SUBCUTANEOUS)
     Route: 058
     Dates: start: 20110422
  3. DEGARELIX (DEGARELIX) (240 MG, 360 MG) [Suspect]
     Indication: PROSTATE CANCER
     Dosage: (240 MG 1X SUBCUTANEOUS), (360 MG 1X/3 MONTHS SUBCUTANEOUS)
     Route: 058
     Dates: start: 20110325, end: 20110325

REACTIONS (1)
  - COLONIC POLYP [None]
